FAERS Safety Report 14022360 (Version 1)
Quarter: 2017Q3

REPORT INFORMATION
  Report Type: Spontaneous
  Country: US (occurrence: US)
  Receive Date: 20170928
  Receipt Date: 20170928
  Transmission Date: 20171128
  Serious: No
  Sender: FDA-Public Use
  Company Number: US-DRREDDYS-USA/USA/17/0092114

PATIENT
  Sex: Male
  Weight: 100.24 kg

DRUGS (2)
  1. AMOXICILLIN. [Suspect]
     Active Substance: AMOXICILLIN
     Indication: STAPHYLOCOCCAL INFECTION
     Route: 065
     Dates: start: 20170619, end: 20170621
  2. AMOXICILLIN. [Suspect]
     Active Substance: AMOXICILLIN
     Indication: OSTEOMYELITIS

REACTIONS (2)
  - Drug resistance [Unknown]
  - Product quality issue [Unknown]
